FAERS Safety Report 4976045-X (Version None)
Quarter: 2006Q2

REPORT INFORMATION
  Report Type: 
  Country: None (occurrence: None)
  Receive Date: 20060418
  Receipt Date: 20060412
  Transmission Date: 20061013
  Serious: Yes (Hospitalization)
  Sender: FDA-Public Use
  Company Number: US-MERCK-0604USA02091

PATIENT
  Age: 66 Year
  Sex: Male
  Weight: 99 kg

DRUGS (9)
  1. VIOXX [Suspect]
     Indication: OSTEOARTHRITIS
     Route: 048
     Dates: start: 19991101, end: 20030101
  2. VIOXX [Suspect]
     Route: 048
     Dates: start: 19991101, end: 20030101
  3. LESCOL [Concomitant]
     Route: 065
  4. LANOXIN [Concomitant]
     Route: 065
  5. PRILOSEC [Concomitant]
     Route: 065
  6. OXYCONTIN [Concomitant]
     Route: 065
  7. ZYRTEC [Concomitant]
     Route: 065
  8. ALBUTEROL [Concomitant]
     Route: 065
  9. FLOMAX [Concomitant]
     Route: 065

REACTIONS (3)
  - ARTERIAL OCCLUSIVE DISEASE [None]
  - CEREBROVASCULAR ACCIDENT [None]
  - RENAL FAILURE [None]
